FAERS Safety Report 6696777 (Version 1)
Quarter: 2020Q3

REPORT INFORMATION
  Report Type: Spontaneous
  Country: US (occurrence: None)
  Receive Date: 20080630
  Receipt Date: 20080630
  Transmission Date: 20201104
  Serious: No
  Sender: FDA-Public Use
  Company Number: None

PATIENT
  Age: 40 Year
  Sex: Female
  Weight: 103.06 kg

DRUGS (1)
  1. PHENAZOPYRIDINE. [Suspect]
     Active Substance: PHENAZOPYRIDINE
     Indication: URINARY TRACT DISORDER
     Dosage: ONE TABLET THREE TIMES A DAY PO
     Route: 048
     Dates: start: 20080621, end: 20080628

REACTIONS (4)
  - Pain in extremity [None]
  - Oedema peripheral [None]
  - Arthralgia [None]
  - Joint swelling [None]

NARRATIVE: CASE EVENT DATE: 20080628
